FAERS Safety Report 9279362 (Version 3)
Quarter: 2013Q3

REPORT INFORMATION
  Report Type: Report from Study
  Country: NL (occurrence: NL)
  Receive Date: 20130508
  Receipt Date: 20130731
  Transmission Date: 20140515
  Serious: Yes (Other)
  Sender: FDA-Public Use
  Company Number: NL-CELGENEUS-114-21880-13044757

PATIENT
  Age: 63 Year
  Sex: Female

DRUGS (16)
  1. REVLIMID [Suspect]
     Indication: PLASMA CELL MYELOMA
     Dosage: 25 MILLIGRAM
     Route: 048
     Dates: start: 20100507
  2. REVLIMID [Suspect]
     Dosage: 25 MILLIGRAM
     Route: 048
     Dates: end: 20101019
  3. REVLIMID [Suspect]
     Dosage: 10 MILLIGRAM
     Route: 048
     Dates: start: 20111020
  4. REVLIMID [Suspect]
     Dosage: 10 MILLIGRAM
     Route: 048
     Dates: start: 20120614
  5. REVLIMID [Suspect]
     Dosage: 10 MILLIGRAM
     Route: 048
     Dates: end: 20130314
  6. DEXAMETHASONE [Suspect]
     Indication: PLASMA CELL MYELOMA
     Route: 048
     Dates: start: 20100507
  7. DEXAMETHASONE [Suspect]
     Dosage: 20 MILLIGRAM
     Route: 048
     Dates: end: 20101019
  8. CALCICHEW [Concomitant]
     Indication: OSTEOPOROSIS PROPHYLAXIS
     Dosage: MG/IE
     Route: 048
     Dates: start: 201010
  9. MORPHINE HCL [Concomitant]
     Indication: PAIN
     Dosage: 10 MILLIGRAM
     Route: 048
     Dates: start: 201006
  10. PARACETAMOL [Concomitant]
     Indication: PAIN
     Route: 048
     Dates: start: 201012
  11. CYCLOPHOSPHAMIDE [Concomitant]
     Indication: PLASMA CELL MYELOMA
     Dosage: DAY 1-21
     Route: 048
     Dates: start: 20111020
  12. CYCLOPHOSPHAMIDE [Concomitant]
     Dosage: DAY 1-21
     Route: 048
  13. CYCLOPHOSPHAMIDE [Concomitant]
     Dosage: DAY 1-21
     Route: 048
     Dates: start: 20120614
  14. PREDNISONE [Concomitant]
     Indication: PLASMA CELL MYELOMA
     Route: 048
     Dates: start: 20111020
  15. PREDNISONE [Concomitant]
     Dosage: 20 MILLIGRAM
     Route: 048
  16. PREDNISONE [Concomitant]
     Dosage: 20 MILLIGRAM
     Route: 048
     Dates: start: 20120614

REACTIONS (1)
  - Metastatic malignant melanoma [Not Recovered/Not Resolved]
